FAERS Safety Report 15013953 (Version 1)
Quarter: 2018Q2

REPORT INFORMATION
  Report Type: Spontaneous
  Country: US (occurrence: US)
  Receive Date: 20180614
  Receipt Date: 20180614
  Transmission Date: 20180711
  Serious: Yes (Hospitalization, Other)
  Sender: FDA-Public Use
  Company Number: US-009507513-1806USA002729

PATIENT
  Age: 84 Year
  Sex: Male

DRUGS (1)
  1. COZAAR [Suspect]
     Active Substance: LOSARTAN POTASSIUM
     Indication: RENAL IMPAIRMENT
     Dosage: UNK
     Route: 048

REACTIONS (2)
  - Lymphocytic lymphoma [Recovering/Resolving]
  - Drug ineffective [Unknown]
